FAERS Safety Report 16751929 (Version 2)
Quarter: 2020Q3

REPORT INFORMATION
  Report Type: Spontaneous
  Country: NL (occurrence: NL)
  Receive Date: 20190828
  Receipt Date: 20200924
  Transmission Date: 20201102
  Serious: Yes (Disabling)
  Sender: FDA-Public Use
  Company Number: NL-TEVA-2019-NL-1097388

PATIENT
  Age: 57 Year
  Sex: Male
  Weight: 65 kg

DRUGS (23)
  1. FUROSEMIDE / BRAND NAME NOT SPECIFIED [Concomitant]
     Dosage: 1 DOSAGE FORMS, FROM PERFUSOR 120 MG/DAY TO BOLUSES 40 MG 1DD, DURING ADMISSION
  2. BUMETANIDE TABLET 5MG / BRAND NAME NOT SPECIFIED [Concomitant]
     Dosage: 5 MILLIGRAM, 2DD1 PER PROBE
  3. VANCOMYCINE [VANCOMYCIN] [Suspect]
     Active Substance: VANCOMYCIN
     Indication: ARTERITIS
  4. METOPROLOL TABLET 100MG / BRAND NAME NOT SPECIFIED [Concomitant]
     Active Substance: METOPROLOL
     Dosage: 100 MILLIGRAM, 3DD1 PER PROBE
  5. ERYTROMYCINE / BRAND NAME NOT SPECIFIED [Concomitant]
  6. THIAMINE TABLET 100MG / BRAND NAME NOT SPECIFIED [Concomitant]
     Dosage: 100 MILLIGRAM, 1DD1 IV
  7. LINEZOLID TABLET FO 600MG / BRAND NAME NOT SPECIFIED [Concomitant]
     Dosage: 1DOSAGE FORMS, 2DD IV
  8. FENPROCOUMON TABLET 3MG / BRAND NAME NOT SPECIFIED [Concomitant]
     Dosage: 3 MILLIGRAM, 1DD1 PER PROBE
  9. VANCOMYCINE [VANCOMYCIN] [Suspect]
     Active Substance: VANCOMYCIN
     Indication: ABDOMINAL ABSCESS
  10. SALBUTAMOL/IPRATROPIUM VERNEVELVLST 1/0,2MG/ML / IPRAMOL STERI?NEB VER [Concomitant]
     Dosage: 1 DOSAGE FORMS, SPRAY 6DD
  11. PARACETAMOL TABLET 1000MG / BRAND NAME NOT SPECIFIED [Concomitant]
     Dosage: 1 DOSAGE FORMS, 4DD PER PROBE
  12. MACROGOL/ZOUTEN PDR V DRANK (MOVIC/MOLAX/LAXT/GEN) / MOVICOLON POEDER [Concomitant]
     Dosage: 1 DOSAGE FORMS,  2DD PER PROBE
  13. AMLODIPINE TABLET 10MG / BRAND NAME NOT SPECIFIED [Concomitant]
     Dosage: 10 MILLIGRAM, 1DD1 PER PROBE
  14. NORTRIPTYLINE TABLET 25MG / BRAND NAME NOT SPECIFIED [Concomitant]
     Dosage: 25 MILLIGRAM, 1DD1 PER PROBE
  15. SEVELAMEER CAPSULE 100MG (CARBONAAT) / BRAND NAME NOT SPECIFIED [Concomitant]
     Dosage: 2400 MILLIGRAM, 3DD1 PER PROBE
  16. VANCOMYCINE [VANCOMYCIN] [Suspect]
     Active Substance: VANCOMYCIN
     Indication: ENTEROCOCCAL INFECTION
     Dosage: 1 DOSAGE FORMS, INITIALLY 1000 MG / 24 HOURS, AFTERWARDS ON MIRROR GUIDANCE
     Dates: start: 20190625, end: 20190715
  17. NATRIUMCHLORIDE SPOELING 30MG/ML (3%) / BRAND NAME NOT SPECIFIED [Concomitant]
     Dosage: 1 DOSAGE FORMS, 4DD NEBULIZING
  18. DOXAZOSINE TABLET MGA 8MG / BRAND NAME NOT SPECIFIED [Concomitant]
     Dosage: 8 MILLIGRAM DAILY; 8 MILLIGRAM, 1DD1 PER PROBE
  19. PERINDOPRIL TABLET 4MG (ERBUMINE) / BRAND NAME NOT SPECIFIED [Concomitant]
     Dosage: 4 MILLIGRAM, 1DD PER PROBE
  20. HALOPERIDOL / BRAND NAME NOT SPECIFIED [Concomitant]
     Dosage: 1 DOSAGE FORMS, 3DD 0.5?0.5?2 MG IV
     Route: 042
  21. CLOPIDOGREL TABLET 75MG / BRAND NAME NOT SPECIFIED [Concomitant]
     Dosage: 75 MILLIGRAM, 1DD1 PER PROBE
  22. SPIRONOLACTON TABLET 50MG / BRAND NAME NOT SPECIFIED [Concomitant]
     Dosage: 50 MILLIGRAM, 1DD1 PER PROBE
  23. OXYCODON TABLET 5MG / BRAND NAME NOT SPECIFIED [Concomitant]
     Dosage: 1 DOSAGE FORMS, IF NECESSARY FOR WOUND CARE OR TRANSFERS

REACTIONS (1)
  - Deafness neurosensory [Not Recovered/Not Resolved]

NARRATIVE: CASE EVENT DATE: 20190715
